FAERS Safety Report 4584610-7 (Version None)
Quarter: 2005Q1

REPORT INFORMATION
  Report Type: 
  Country: None (occurrence: None)
  Receive Date: 20050216
  Receipt Date: 20050206
  Transmission Date: 20050727
  Serious: Yes (Life-Threatening, Disabling)
  Sender: FDA-Public Use
  Company Number: AE-MERCK-0502USA01545

PATIENT
  Age: 74 Year
  Sex: Female

DRUGS (2)
  1. FOSAMAX [Suspect]
     Indication: OSTEOPOROSIS
     Route: 048
     Dates: start: 20050127, end: 20050127
  2. [THERAPY UNSPECIFIED] [Suspect]
     Indication: DIABETES MELLITUS
     Route: 048

REACTIONS (2)
  - CERVICAL SPASM [None]
  - MUSCLE SPASMS [None]
